FAERS Safety Report 8622048-3 (Version None)
Quarter: 2012Q3

REPORT INFORMATION
  Report Type: 
  Country: None (occurrence: None)
  Receive Date: 20120823
  Receipt Date: 20120823
  Transmission Date: 20120928
  Serious: No
  Sender: FDA-Public Use
  Company Number: None

PATIENT
  Sex: Female
  Weight: 58.9676 kg

DRUGS (2)
  1. KETOROLAC TROMETHAMINE [Suspect]
     Indication: CATARACT OPERATION
     Dosage: ONE DROP 4 TIMES DAILY
     Dates: start: 20120110, end: 20120114
  2. KETOROLAC TROMETHAMINE [Suspect]
     Indication: CATARACT OPERATION
     Dosage: ONE DROP 4 TIMES DAILY
     Dates: start: 20111107, end: 20111122

REACTIONS (1)
  - CORNEAL EROSION [None]
